FAERS Safety Report 5639243-8 (Version None)
Quarter: 2008Q1

REPORT INFORMATION
  Report Type: 
  Country: None (occurrence: None)
  Receive Date: 20080226
  Receipt Date: 20080215
  Transmission Date: 20080703
  Serious: Yes (Death)
  Sender: FDA-Public Use
  Company Number: TR-ELI_LILLY_AND_COMPANY-TR200802004507

PATIENT

DRUGS (5)
  1. HUMULIN R [Suspect]
     Indication: DIABETES MELLITUS
     Dosage: 10 IU, 3/D
     Route: 064
     Dates: start: 20071101, end: 20080125
  2. HUMULIN N [Suspect]
     Indication: DIABETES MELLITUS
     Dosage: 9 IU, EACH EVENING
     Route: 064
     Dates: start: 20071101, end: 20080125
  3. VENTOLIN /00139502/ [Concomitant]
     Indication: ASTHMA
     Dosage: UNK, 4/D
     Route: 064
     Dates: start: 20070101, end: 20080125
  4. PULMICORT [Concomitant]
     Indication: ASTHMA
     Dosage: UNK, 4/D
     Route: 064
     Dates: start: 20070101, end: 20080125
  5. ORAL ANTIDIABETICS [Concomitant]
     Indication: DIABETES MELLITUS
     Dosage: UNK, UNK
     Route: 064
     Dates: start: 20040101, end: 20071101

REACTIONS (2)
  - DEATH [None]
  - DRUG EXPOSURE DURING PREGNANCY [None]
